FAERS Safety Report 6468471-7 (Version None)
Quarter: 2009Q4

REPORT INFORMATION
  Report Type: 
  Country: None (occurrence: None)
  Receive Date: 20091202
  Receipt Date: 20091202
  Transmission Date: 20100525
  Serious: Yes (Other)
  Sender: FDA-Public Use
  Company Number: None

PATIENT
  Sex: Female
  Weight: 96.1626 kg

DRUGS (2)
  1. LEXAPRO [Suspect]
     Indication: FIBROMYALGIA
     Dosage: 20 MG 1 X DAY
     Dates: start: 20020101, end: 20090101
  2. LEXAPRO [Suspect]
     Indication: OFF LABEL USE
     Dosage: 20 MG 1 X DAY
     Dates: start: 20020101, end: 20090101

REACTIONS (3)
  - DEPRESSION [None]
  - OFF LABEL USE [None]
  - SUICIDAL IDEATION [None]
